FAERS Safety Report 24631424 (Version 2)
Quarter: 2024Q4

REPORT INFORMATION
  Report Type: Report from Study
  Country: US (occurrence: US)
  Receive Date: 20241118
  Receipt Date: 20241121
  Transmission Date: 20250115
  Serious: Yes (Hospitalization)
  Sender: EISAI
  Company Number: US-Eisai-EC-2024-178650

PATIENT
  Age: 62 Year
  Sex: Female

DRUGS (7)
  1. LENVIMA [Suspect]
     Active Substance: LENVATINIB
     Indication: Endometrial cancer
     Route: 048
     Dates: start: 20241025, end: 202411
  2. CEPHALEXIN [Concomitant]
     Active Substance: CEPHALEXIN
  3. DILAUDID [Concomitant]
     Active Substance: HYDROMORPHONE HYDROCHLORIDE
  4. GABAPENTIN [Concomitant]
     Active Substance: GABAPENTIN
  5. METHIMAZOLE [Concomitant]
     Active Substance: METHIMAZOLE
  6. MYRBETRIQ [Concomitant]
     Active Substance: MIRABEGRON
  7. OXYCODONE [Concomitant]
     Active Substance: OXYCODONE

REACTIONS (5)
  - Hypertension [Recovered/Resolved]
  - Pain [Not Recovered/Not Resolved]
  - Diarrhoea [Recovered/Resolved]
  - Dysphonia [Unknown]
  - Uterine haemorrhage [Unknown]

NARRATIVE: CASE EVENT DATE: 20240101
